FAERS Safety Report 10385626 (Version 1)
Quarter: 2014Q3

REPORT INFORMATION
  Report Type: Spontaneous
  Country: CH (occurrence: None)
  Receive Date: 20140812
  Receipt Date: 20140812
  Transmission Date: 20150326
  Serious: Yes (Hospitalization, Other)
  Sender: FDA-Public Use
  Company Number: AXC-2014-000479

PATIENT
  Age: 62 Year
  Sex: Male

DRUGS (11)
  1. FLUCONAZOL (FLUCONAZOLE) [Concomitant]
  2. CELLCEPT [Concomitant]
     Active Substance: MYCOPHENOLATE MOFETIL\MYCOPHENOLATE MOFETIL HYDROCHLORIDE
  3. BACTRIM [Suspect]
     Active Substance: SULFAMETHOXAZOLE\TRIMETHOPRIM
     Indication: PRODUCT USED FOR UNKNOWN INDICATION
     Route: 048
     Dates: start: 201404, end: 20140512
  4. VALIXA [Suspect]
     Active Substance: VALGANCICLOVIR
     Indication: CYTOMEGALOVIRUS TEST POSITIVE
     Route: 048
     Dates: start: 20140506, end: 20140512
  5. PHENOXYMETHYLPENICILLIN [Suspect]
     Active Substance: PENICILLIN V
     Dosage: 10000000 LU DAILY, ORAL
     Route: 048
     Dates: start: 20140424, end: 20140512
  6. NEXIUM [Concomitant]
     Active Substance: ESOMEPRAZOLE MAGNESIUM
  7. URSODEOXYCHOLIC ACID [Suspect]
     Active Substance: URSODIOL
     Indication: PRODUCT USED FOR UNKNOWN INDICATION
     Route: 048
  8. CELEBREX [Suspect]
     Active Substance: CELECOXIB
     Indication: PAIN
     Route: 048
     Dates: start: 20140507, end: 20140512
  9. LISINOPRIL. [Suspect]
     Active Substance: LISINOPRIL
     Indication: PRODUCT USED FOR UNKNOWN INDICATION
     Route: 048
     Dates: end: 20140512
  10. CYCLOSPORIN [Suspect]
     Active Substance: CYCLOSPORINE
     Indication: PRODUCT USED FOR UNKNOWN INDICATION
     Route: 048
     Dates: start: 20140408, end: 20140506
  11. ASPIRIN (ACETYSALICYLIC ACID) [Concomitant]

REACTIONS (10)
  - Pain in extremity [None]
  - Arthralgia [None]
  - Musculoskeletal pain [None]
  - Renal failure acute [None]
  - Cytomegalovirus infection [None]
  - Haemoglobin decreased [None]
  - Lung infiltration [None]
  - Pancreatitis [None]
  - Abdominal pain upper [None]
  - Graft versus host disease [None]

NARRATIVE: CASE EVENT DATE: 20140506
